FAERS Safety Report 13372097 (Version 1)
Quarter: 2017Q1

REPORT INFORMATION
  Report Type: Spontaneous
  Country: FR (occurrence: FR)
  Receive Date: 20170327
  Receipt Date: 20170327
  Transmission Date: 20170429
  Serious: Yes (Hospitalization)
  Sender: FDA-Public Use
  Company Number: FR-ROCHE-1909768

PATIENT
  Age: 74 Year
  Sex: Male
  Weight: 73.5 kg

DRUGS (1)
  1. ROACTEMRA [Suspect]
     Active Substance: TOCILIZUMAB
     Indication: RHEUMATOID ARTHRITIS
     Route: 041
     Dates: start: 20110315

REACTIONS (1)
  - Clear cell sarcoma of soft tissue [Unknown]

NARRATIVE: CASE EVENT DATE: 20161125
